FAERS Safety Report 22049267 (Version 1)
Quarter: 2023Q1

REPORT INFORMATION
  Report Type: Spontaneous
  Country: AU (occurrence: AU)
  Receive Date: 20230301
  Receipt Date: 20230301
  Transmission Date: 20230417
  Serious: Yes (Other)
  Sender: FDA-Public Use
  Company Number: AU-MYLANLABS-2023M1020857

PATIENT
  Sex: Male

DRUGS (12)
  1. QUETIAPINE [Suspect]
     Active Substance: QUETIAPINE
     Indication: Bipolar II disorder
     Dosage: 25 MILLIGRAM; LOW DOSE
     Route: 065
  2. QUETIAPINE [Suspect]
     Active Substance: QUETIAPINE
     Dosage: 250 MILLIGRAM, QD; INCREASED TO
     Route: 065
  3. QUETIAPINE [Suspect]
     Active Substance: QUETIAPINE
     Dosage: UNK; BEGAN TAPERING
     Route: 065
  4. VALPROIC ACID [Suspect]
     Active Substance: VALPROIC ACID
     Indication: Bipolar II disorder
     Dosage: UNK; INITIAL DOSE NOT STATED
     Route: 065
  5. VALPROIC ACID [Suspect]
     Active Substance: VALPROIC ACID
     Dosage: 800 MILLIGRAM, QD; INCREASED TO
     Route: 065
  6. VALPROIC ACID [Suspect]
     Active Substance: VALPROIC ACID
     Dosage: UNK; DOSE REDUCED
     Route: 065
  7. LAMOTRIGINE [Concomitant]
     Active Substance: LAMOTRIGINE
     Indication: Bipolar II disorder
     Dosage: UNK; INITIAL DOSE NOT STATED
     Route: 065
  8. LAMOTRIGINE [Concomitant]
     Active Substance: LAMOTRIGINE
     Dosage: 200 MILLIGRAM; NOCTE [TITRATED TO 200MG OVER EIGHT WEEKS]
     Route: 065
  9. LAMOTRIGINE [Concomitant]
     Active Substance: LAMOTRIGINE
     Dosage: 400 MILLIGRAM, QD; INCREASED TO
     Route: 065
  10. LACTOBACILLUS ACIDOPHILUS [Concomitant]
     Active Substance: LACTOBACILLUS ACIDOPHILUS
     Indication: Bipolar II disorder
     Dosage: UNK; 32 BILLION CFU
     Route: 065
     Dates: start: 201907
  11. LACTOBACILLUS RHAMNOSUS [Concomitant]
     Active Substance: LACTOBACILLUS RHAMNOSUS
     Indication: Bipolar II disorder
     Dosage: UNK; 4 BILLION CFU
     Route: 065
     Dates: start: 201907
  12. SACCHAROMYCES CEREVISIAE [Concomitant]
     Active Substance: SACCHAROMYCES CEREVISIAE
     Indication: Bipolar II disorder
     Dosage: UNK; 4 BILLION CFU
     Route: 065
     Dates: start: 201907

REACTIONS (7)
  - Drug dependence [Recovered/Resolved]
  - Depressed level of consciousness [Recovering/Resolving]
  - Food craving [Recovering/Resolving]
  - Weight increased [Recovered/Resolved]
  - Irritability [Recovering/Resolving]
  - Speech disorder [Recovering/Resolving]
  - Sleep deficit [Recovering/Resolving]
